FAERS Safety Report 6009525-9 (Version None)
Quarter: 2008Q4

REPORT INFORMATION
  Report Type: 
  Country: None (occurrence: None)
  Receive Date: 20081217
  Receipt Date: 20081006
  Transmission Date: 20090506
  Serious: No
  Sender: FDA-Public Use
  Company Number: US-BAYER-200835642NA

PATIENT
  Age: 25 Year
  Sex: Female
  Weight: 54 kg

DRUGS (1)
  1. YAZ [Suspect]
     Indication: ACNE
     Route: 048
     Dates: start: 20080921

REACTIONS (2)
  - DIARRHOEA [None]
  - VULVOVAGINAL MYCOTIC INFECTION [None]
